FAERS Safety Report 6147919-1 (Version None)
Quarter: 2009Q2

REPORT INFORMATION
  Report Type: 
  Country: None (occurrence: None)
  Receive Date: 20090408
  Receipt Date: 20090330
  Transmission Date: 20091009
  Serious: Yes (Death)
  Sender: FDA-Public Use
  Company Number: US-PFIZER INC-2009183224

PATIENT
  Sex: Male
  Weight: 187 kg

DRUGS (1)
  1. CAMPTOSAR [Suspect]
     Indication: OESOPHAGEAL CARCINOMA
     Dosage: 130 MG
     Route: 042
     Dates: start: 20081015

REACTIONS (2)
  - DISEASE PROGRESSION [None]
  - OESOPHAGEAL CARCINOMA [None]
